FAERS Safety Report 25902015 (Version 1)
Quarter: 2025Q4

REPORT INFORMATION
  Report Type: Spontaneous
  Country: EU (occurrence: EU)
  Receive Date: 20251009
  Receipt Date: 20251009
  Transmission Date: 20260118
  Serious: Yes (Other)
  Sender: MERZ
  Company Number: EU-MRZWEB-2025090000201

PATIENT

DRUGS (1)
  1. BOTULINUM TOXIN TYPE A [Suspect]
     Active Substance: BOTULINUM TOXIN TYPE A
     Indication: Neurogenic bladder

REACTIONS (2)
  - Retroperitoneal haematoma [Recovering/Resolving]
  - Product use in unapproved indication [Unknown]
